FAERS Safety Report 6356927-7 (Version None)
Quarter: 2009Q3

REPORT INFORMATION
  Report Type: 
  Country: None (occurrence: None)
  Receive Date: 20090915
  Receipt Date: 20090903
  Transmission Date: 20100115
  Serious: Yes (Other)
  Sender: FDA-Public Use
  Company Number: US-PFIZER INC-2009246098

PATIENT
  Sex: Female
  Weight: 38.095 kg

DRUGS (1)
  1. GEODON [Suspect]
     Indication: BIPOLAR I DISORDER
     Dosage: 100 MG, 1X/DAY
     Dates: start: 20080701, end: 20080701

REACTIONS (11)
  - BLOOD GLUCOSE INCREASED [None]
  - BREAST ENLARGEMENT [None]
  - MALAISE [None]
  - MALNUTRITION [None]
  - MYOCARDIAL INFARCTION [None]
  - NAUSEA [None]
  - PARAESTHESIA [None]
  - POLLAKIURIA [None]
  - SYNCOPE [None]
  - THIRST [None]
  - VISION BLURRED [None]
